FAERS Safety Report 9543277 (Version 3)
Quarter: 2013Q4

REPORT INFORMATION
  Report Type: Report from Study
  Country: CO (occurrence: CO)
  Receive Date: 20130923
  Receipt Date: 20131021
  Transmission Date: 20140711
  Serious: Yes (Death, Life-Threatening, Hospitalization, Other)
  Sender: FDA-Public Use
  Company Number: CO-ROCHE-1278860

PATIENT
  Age: 61 Year
  Sex: Male
  Weight: 55 kg

DRUGS (5)
  1. RANIBIZUMAB [Suspect]
     Indication: MACULAR DEGENERATION
     Route: 050
     Dates: start: 201304
  2. RANIBIZUMAB [Suspect]
     Indication: VISION BLURRED
     Route: 050
     Dates: start: 20130908
  3. LOSARTAN [Concomitant]
  4. FOLIC ACID [Concomitant]
  5. LANSOPRAZOLE [Concomitant]

REACTIONS (4)
  - Death [Fatal]
  - Cardiac valve disease [Recovering/Resolving]
  - Angina unstable [Unknown]
  - Myocardial infarction [Recovering/Resolving]
